FAERS Safety Report 4538142-2 (Version None)
Quarter: 2004Q4

REPORT INFORMATION
  Report Type: 
  Country: None (occurrence: None)
  Receive Date: 20041221
  Receipt Date: 20041209
  Transmission Date: 20050328
  Serious: Yes (Other)
  Sender: FDA-Public Use
  Company Number: LTI2004A00266

PATIENT
  Age: 98 Year
  Sex: Male

DRUGS (1)
  1. ACTOS [Suspect]
     Indication: DIABETES MELLITUS NON-INSULIN-DEPENDENT
     Dosage: ORAL      DAYS
     Route: 048
     Dates: start: 20020101

REACTIONS (3)
  - CARDIAC FAILURE [None]
  - COUGH [None]
  - PULMONARY OEDEMA [None]
